FAERS Safety Report 12480021 (Version 1)
Quarter: 2016Q2

REPORT INFORMATION
  Report Type: Spontaneous
  Country: US (occurrence: None)
  Receive Date: 20160617
  Receipt Date: 20160617
  Transmission Date: 20160815
  Serious: No
  Sender: FDA-Public Use
  Company Number: None

PATIENT
  Age: 68 Year
  Sex: Female

DRUGS (8)
  1. SYNTHROID [Concomitant]
     Active Substance: LEVOTHYROXINE SODIUM
  2. XANAX [Concomitant]
     Active Substance: ALPRAZOLAM
  3. IBRANCE [Suspect]
     Active Substance: PALBOCICLIB
     Indication: BREAST CANCER
     Dosage: 125MG 21DAYS ON 7 OFF QD PO
     Route: 048
     Dates: start: 20160305
  4. FASLODEX [Concomitant]
     Active Substance: FULVESTRANT
  5. POTASSIUM [Concomitant]
     Active Substance: POTASSIUM
  6. ALBUTEROL. [Concomitant]
     Active Substance: ALBUTEROL
  7. TRIAMINIC CHILDRENS NIGHT TIME COLD AND COUGH [Concomitant]
     Active Substance: DIPHENHYDRAMINE HYDROCHLORIDE\PHENYLEPHRINE HYDROCHLORIDE
  8. VITAMIN D3 [Concomitant]
     Active Substance: CHOLECALCIFEROL

REACTIONS (3)
  - Diarrhoea [None]
  - Weight decreased [None]
  - Pyrexia [None]

NARRATIVE: CASE EVENT DATE: 201605
